FAERS Safety Report 11340576 (Version 1)
Quarter: 2015Q3

REPORT INFORMATION
  Report Type: Spontaneous
  Country: GB (occurrence: GB)
  Receive Date: 20150805
  Receipt Date: 20150805
  Transmission Date: 20151125
  Serious: Yes (Hospitalization, Other)
  Sender: FDA-Public Use
  Company Number: GB-PFIZER INC-2015254730

PATIENT
  Age: 63 Year
  Sex: Male

DRUGS (24)
  1. CYCLIZINE [Concomitant]
     Active Substance: CYCLIZINE
  2. FEXOFENADINE [Concomitant]
     Active Substance: FEXOFENADINE\FEXOFENADINE HYDROCHLORIDE
  3. MOVICOL [Concomitant]
     Active Substance: POLYETHYLENE GLYCOL 3350\POTASSIUM CHLORIDE\SODIUM BICARBONATE\SODIUM CHLORIDE
  4. INSULIN ISOPHANE HUMAN SEMISYNTHETIC [Concomitant]
  5. TIOTROPIUM [Concomitant]
     Active Substance: TIOTROPIUM
  6. GABAPENTIN. [Concomitant]
     Active Substance: GABAPENTIN
  7. FYBOGEL [Concomitant]
     Active Substance: PLANTAGO OVATA SEED
  8. IBUPROFEN. [Suspect]
     Active Substance: IBUPROFEN
     Indication: PAIN
     Dosage: 400 MG, 3X/DAY
     Route: 048
  9. DOCUSATE [Concomitant]
     Active Substance: DOCUSATE
  10. EXENATIDE [Concomitant]
     Active Substance: EXENATIDE
  11. ONDANSETRON [Concomitant]
     Active Substance: ONDANSETRON
  12. SERETIDE [Concomitant]
     Active Substance: FLUTICASONE FUROATE\SALMETEROL XINAFOATE
  13. METFORMIN HCL [Suspect]
     Active Substance: METFORMIN HYDROCHLORIDE
     Indication: DIABETES MELLITUS
     Dosage: 1 G, 2X/DAY
     Route: 048
  14. CODEINE [Concomitant]
     Active Substance: CODEINE
  15. HYDROMOL /00906601/ [Concomitant]
  16. ATORVASTATIN [Concomitant]
     Active Substance: ATORVASTATIN
  17. LOSARTAN. [Suspect]
     Active Substance: LOSARTAN
     Dosage: 50 MG, 1X/DAY
     Route: 048
  18. ALLOPURINOL. [Suspect]
     Active Substance: ALLOPURINOL
     Indication: GOUT
     Dosage: 300 MG, 1X/DAY
     Route: 048
  19. ACETYLSALICYLIC ACID [Concomitant]
     Active Substance: ASPIRIN
  20. OXYCODONE [Concomitant]
     Active Substance: OXYCODONE
  21. PARACETAMOL [Concomitant]
     Active Substance: ACETAMINOPHEN
  22. ACIDEX [Concomitant]
     Active Substance: CALCIUM CARBONATE\SODIUM ALGINATE\SODIUM BICARBONATE
  23. SALBUTAMOL [Concomitant]
     Active Substance: ALBUTEROL
  24. SENNA [Concomitant]
     Active Substance: SENNA LEAF\SENNOSIDES\SENNOSIDES A AND B

REACTIONS (2)
  - Acute kidney injury [Recovered/Resolved]
  - Hyperkalaemia [Recovered/Resolved]
